FAERS Safety Report 7136763-4 (Version None)
Quarter: 2010Q4

REPORT INFORMATION
  Report Type: 
  Country: None (occurrence: None)
  Receive Date: 20101118
  Receipt Date: 20101026
  Transmission Date: 20110411
  Serious: Yes (Other)
  Sender: FDA-Public Use
  Company Number: 2010PV000077

PATIENT
  Sex: Female

DRUGS (1)
  1. DEPOCYT [Suspect]
     Indication: ACUTE PROMYELOCYTIC LEUKAEMIA
     Dosage: INTH
     Route: 037

REACTIONS (4)
  - BALANCE DISORDER [None]
  - NERVOUS SYSTEM DISORDER [None]
  - SCAR [None]
  - VISUAL IMPAIRMENT [None]
